FAERS Safety Report 17157095 (Version 1)
Quarter: 2019Q4

REPORT INFORMATION
  Report Type: Spontaneous
  Country: US (occurrence: US)
  Receive Date: 20191216
  Receipt Date: 20191216
  Transmission Date: 20200122
  Serious: No
  Sender: FDA-Public Use
  Company Number: US-AUROBINDO-AUR-APL-2019-071367

PATIENT
  Age: 45 Year
  Sex: Female
  Weight: 76 kg

DRUGS (5)
  1. LEVOTHYROXINE. [Concomitant]
     Active Substance: LEVOTHYROXINE
     Indication: PRODUCT USED FOR UNKNOWN INDICATION
     Dosage: UNK
     Route: 065
  2. PROGESTERONE INJECTION USP 500MG/10ML MULTIPLE-DOSE VIAL [Suspect]
     Active Substance: PROGESTERONE
     Dosage: 1 MILLILITER
     Route: 030
     Dates: start: 20190930
  3. PROGESTERONE INJECTION USP 500MG/10ML MULTIPLE-DOSE VIAL [Suspect]
     Active Substance: PROGESTERONE
     Dosage: 50 MILLIGRAM, ONCE A DAY
     Route: 065
     Dates: start: 20190918, end: 20191006
  4. PROGESTERONE INJECTION USP 500MG/10ML MULTIPLE-DOSE VIAL [Suspect]
     Active Substance: PROGESTERONE
     Indication: IN VITRO FERTILISATION
     Dosage: 1 MILLILITER
     Route: 030
     Dates: start: 20190929
  5. ESTRACE [Concomitant]
     Active Substance: ESTRADIOL
     Indication: PRODUCT USED FOR UNKNOWN INDICATION
     Dosage: UNK
     Route: 065

REACTIONS (3)
  - Injection site pruritus [Recovered/Resolved]
  - Injection site mass [Unknown]
  - Injection site discolouration [Unknown]

NARRATIVE: CASE EVENT DATE: 20190930
